FAERS Safety Report 6709075-8 (Version None)
Quarter: 2010Q2

REPORT INFORMATION
  Report Type: 
  Country: None (occurrence: None)
  Receive Date: 20100430
  Receipt Date: 20100430
  Transmission Date: 20101027
  Serious: Yes (Hospitalization)
  Sender: FDA-Public Use
  Company Number: None

PATIENT
  Age: 23 Year
  Sex: Female
  Weight: 88 kg

DRUGS (2)
  1. DILANTIN [Suspect]
     Indication: CONVULSION
     Dosage: UNK UNK ORAL 047
     Route: 048
  2. CARBAMAZEPINE [Suspect]
     Indication: CONVULSION
     Dosage: UNK UNK ORAL 047
     Route: 048

REACTIONS (7)
  - ABDOMINAL PAIN [None]
  - COAGULOPATHY [None]
  - JAUNDICE [None]
  - MALAISE [None]
  - MENTAL STATUS CHANGES [None]
  - NAUSEA [None]
  - PYREXIA [None]
